FAERS Safety Report 14959638 (Version 1)
Quarter: 2018Q2

REPORT INFORMATION
  Report Type: Spontaneous
  Country: US (occurrence: US)
  Receive Date: 20180531
  Receipt Date: 20180531
  Transmission Date: 20180711
  Serious: No
  Sender: FDA-Public Use
  Company Number: US-PERRIGO-18US000045

PATIENT
  Sex: Male
  Weight: 86.17 kg

DRUGS (1)
  1. MINOXIDIL. [Suspect]
     Active Substance: MINOXIDIL
     Indication: ALOPECIA
     Dosage: 1/2 CAPFUL, QD
     Route: 061
     Dates: start: 2013, end: 20180101

REACTIONS (3)
  - Inappropriate schedule of drug administration [Recovered/Resolved]
  - Application site irritation [Recovering/Resolving]
  - Application site papules [Recovering/Resolving]

NARRATIVE: CASE EVENT DATE: 2013
